FAERS Safety Report 6213180-2 (Version None)
Quarter: 2009Q2

REPORT INFORMATION
  Report Type: 
  Country: None (occurrence: None)
  Receive Date: 20090601
  Receipt Date: 20090518
  Transmission Date: 20091009
  Serious: Yes (Hospitalization, Other)
  Sender: FDA-Public Use
  Company Number: 1-18478828

PATIENT
  Age: 75 Year
  Sex: Female

DRUGS (3)
  1. WARFARIN SODIUM [Suspect]
     Indication: THROMBOSIS
     Dosage: 2.4MG DAILY (1/2 OF 5MG TABLET), ORAL
     Route: 048
     Dates: start: 20090422, end: 20090427
  2. WARFARIN SODIUM [Suspect]
     Indication: THROMBOSIS
     Dosage: 2.4MG DAILY (1/2 OF 5MG TABLET), ORAL
     Route: 048
     Dates: start: 20090101
  3. FENTANYL [Suspect]
     Indication: BACK PAIN
     Dosage: 25MCG EVERY 3 DAYS, TRANSDERMAL
     Route: 062
     Dates: start: 20090422, end: 20090427

REACTIONS (8)
  - APPLICATION SITE PAIN [None]
  - CARDIAC PACEMAKER INSERTION [None]
  - DRUG INTERACTION [None]
  - INCREASED TENDENCY TO BRUISE [None]
  - INTERNATIONAL NORMALISED RATIO INCREASED [None]
  - OSTEOPOROSIS [None]
  - PRODUCT SUBSTITUTION ISSUE [None]
  - SPINAL FRACTURE [None]
